FAERS Safety Report 23569468 (Version 1)
Quarter: 2024Q1

REPORT INFORMATION
  Report Type: Spontaneous
  Country: US (occurrence: US)
  Receive Date: 20240227
  Receipt Date: 20240227
  Transmission Date: 20240409
  Serious: No
  Sender: FDA-Public Use
  Company Number: US-JNJFOC-20240233557

PATIENT
  Sex: Female

DRUGS (1)
  1. REMICADE [Suspect]
     Active Substance: INFLIXIMAB
     Indication: Product used for unknown indication
     Route: 041

REACTIONS (9)
  - Photosensitivity reaction [Unknown]
  - Blister [Unknown]
  - Rash [Unknown]
  - Contusion [Unknown]
  - Dehydration [Unknown]
  - Sunburn [Unknown]
  - Eye pain [Unknown]
  - Fatigue [Unknown]
  - Photophobia [Unknown]
